FAERS Safety Report 17631239 (Version 2)
Quarter: 2020Q2

REPORT INFORMATION
  Report Type: Spontaneous
  Country: US (occurrence: US)
  Receive Date: 20200406
  Receipt Date: 20200430
  Transmission Date: 20200713
  Serious: No
  Sender: FDA-Public Use
  Company Number: US-GLAXOSMITHKLINE-US2020056772

PATIENT
  Age: 55 Year
  Sex: Female

DRUGS (2)
  1. HYDROXYCHLOROQUINE CUTANEOUS LIQUID [Concomitant]
     Indication: PRODUCT USED FOR UNKNOWN INDICATION
     Dosage: UNK
     Route: 065
  2. BENLYSTA [Suspect]
     Active Substance: BELIMUMAB
     Indication: SYSTEMIC LUPUS ERYTHEMATOSUS
     Dosage: UNK UNK, CYC
     Route: 058
     Dates: start: 201910

REACTIONS (5)
  - Contusion [Unknown]
  - Exposure via skin contact [Unknown]
  - Underdose [Unknown]
  - Wrong technique in product usage process [Unknown]
  - Infectious mononucleosis [Recovering/Resolving]

NARRATIVE: CASE EVENT DATE: 20200331
